FAERS Safety Report 15543253 (Version 3)
Quarter: 2018Q4

REPORT INFORMATION
  Report Type: Report from Study
  Country: ES (occurrence: ES)
  Receive Date: 20181023
  Receipt Date: 20181109
  Transmission Date: 20190205
  Serious: Yes (Hospitalization)
  Sender: FDA-Public Use
  Company Number: ES-PFIZER INC-2018425281

PATIENT
  Age: 78 Year
  Sex: Male
  Weight: 72 kg

DRUGS (25)
  1. BROMAZEPAN [Concomitant]
     Active Substance: BROMAZEPAM
     Indication: INSOMNIA
     Dosage: 1 MG, 1X/DAY
     Route: 048
     Dates: start: 1993
  2. PARACETAMOL [Concomitant]
     Active Substance: ACETAMINOPHEN
     Indication: PAIN
     Dosage: 3 G, 1X/DAY
     Route: 048
  3. FLUOROURACIL. [Suspect]
     Active Substance: FLUOROURACIL
     Dosage: 2764.8 MG, EVERY 2 WEEKS
     Route: 041
     Dates: start: 20180724, end: 20180724
  4. LEUCOVORIN [FOLINIC ACID] [Suspect]
     Active Substance: LEUCOVORIN
     Indication: COLORECTAL CANCER METASTATIC
     Dosage: 768 MG, EVERY 2 WEEKS
     Route: 042
     Dates: start: 20180919, end: 20180919
  5. LEUCOVORIN [FOLINIC ACID] [Suspect]
     Active Substance: LEUCOVORIN
     Dosage: 768 MG, EVERY 2 WEEKS
     Route: 042
     Dates: start: 20180724, end: 20180724
  6. AFLIBERCEPT [Suspect]
     Active Substance: AFLIBERCEPT
     Dosage: 324.8 MG, EVERY 2 WEEKS
     Route: 042
     Dates: start: 20180724, end: 20180724
  7. LOPERAMIDE [Concomitant]
     Active Substance: LOPERAMIDE
     Indication: DIARRHOEA
     Dosage: UNK
     Route: 048
     Dates: start: 20180724
  8. AMLODIPINO [AMLODIPINE] [Concomitant]
     Indication: HYPERTENSION
     Dosage: 10 MG, 1X/DAY
     Route: 048
     Dates: start: 20180811
  9. IRINOTECAN HCL [Suspect]
     Active Substance: IRINOTECAN HYDROCHLORIDE
     Dosage: 207.36 MG, EVERY 2 WEEKS
     Route: 042
     Dates: start: 20180724, end: 20180724
  10. ZEBETA [Concomitant]
     Active Substance: BISOPROLOL FUMARATE
     Indication: MYOCARDIAL INFARCTION
     Dosage: 2.5 MG, 1X/DAY
     Route: 048
     Dates: start: 2014
  11. VASOTEC [ENALAPRIL MALEATE] [Concomitant]
     Indication: HYPERTENSION
     Dosage: 20 MG, 1X/DAY
     Route: 048
     Dates: start: 2003
  12. CODEINE [Concomitant]
     Active Substance: CODEINE
     Indication: COUGH
     Dosage: 90 MG, 1X/DAY
     Route: 048
  13. FLUOROURACIL. [Suspect]
     Active Substance: FLUOROURACIL
     Indication: COLORECTAL CANCER METASTATIC
     Dosage: 460.8 MG, EVERY 2 WEEKS
     Route: 040
     Dates: start: 20180919, end: 20180919
  14. EUTHYROX [Concomitant]
     Active Substance: LEVOTHYROXINE SODIUM
     Indication: HYPOTHYROIDISM
     Dosage: 125 MG, 1X/DAY
     Route: 048
     Dates: start: 2014, end: 20181010
  15. FLUOROURACIL. [Suspect]
     Active Substance: FLUOROURACIL
     Dosage: 460.8 MG, EVERY 2 WEEKS
     Route: 040
     Dates: start: 20180724, end: 20180724
  16. METFORMIN [Concomitant]
     Active Substance: METFORMIN HYDROCHLORIDE
     Indication: DIABETES MELLITUS
     Dosage: 850 MG, 1X/DAY
     Route: 048
     Dates: start: 2014
  17. IRINOTECAN HCL [Suspect]
     Active Substance: IRINOTECAN HYDROCHLORIDE
     Indication: COLORECTAL CANCER METASTATIC
     Dosage: 207.36 MG, EVERY 2 WEEKS
     Route: 042
     Dates: start: 20180919, end: 20180919
  18. PRILOSEC [OMEPRAZOLE] [Concomitant]
     Indication: PROPHYLAXIS
     Dosage: 20 MG, 1X/DAY
     Route: 048
     Dates: start: 2014
  19. ADIRO [Concomitant]
     Active Substance: ASPIRIN
     Indication: VASCULAR STENT STENOSIS
     Dosage: 100 MG, 1X/DAY
     Route: 048
     Dates: start: 2014
  20. LORMETAZEPAM [Concomitant]
     Active Substance: LORMETAZEPAM
     Indication: INSOMNIA
     Dosage: 2 MG, 1X/DAY
     Route: 065
     Dates: start: 1993, end: 20181010
  21. FLUOROURACIL. [Suspect]
     Active Substance: FLUOROURACIL
     Dosage: 2767.8 MG, EVERY 2 WEEKS
     Route: 041
     Dates: start: 20180919, end: 20180919
  22. AFLIBERCEPT [Suspect]
     Active Substance: AFLIBERCEPT
     Indication: COLORECTAL CANCER METASTATIC
     Dosage: 324.8 MG, EVERY 2 WEEKS
     Route: 042
     Dates: start: 20180919, end: 20180919
  23. EUTIROX [Concomitant]
     Active Substance: LEVOTHYROXINE SODIUM
     Indication: HYPOTHYROIDISM
     Dosage: 125 MG, 1X/DAY
     Route: 048
     Dates: start: 20180913
  24. FORTECORTIN [DEXAMETHASONE] [Concomitant]
     Indication: ASTHENIA
     Dosage: 4 MG, 1X/DAY
     Route: 048
     Dates: start: 20180914, end: 20180919
  25. LIPITOR [Concomitant]
     Active Substance: ATORVASTATIN CALCIUM
     Indication: HYPERCHOLESTEROLAEMIA
     Dosage: 80 MG, 1X/DAY
     Route: 048
     Dates: start: 2008

REACTIONS (1)
  - Discomfort [Recovered/Resolved]

NARRATIVE: CASE EVENT DATE: 20180927
